FAERS Safety Report 4515489-7 (Version None)
Quarter: 2004Q4

REPORT INFORMATION
  Report Type: 
  Country: None (occurrence: None)
  Receive Date: 20041126
  Receipt Date: 20041116
  Transmission Date: 20050328
  Serious: Yes (Other)
  Sender: FDA-Public Use
  Company Number: US-JNJFOC-20041104171

PATIENT
  Age: 70 Year
  Sex: Male

DRUGS (5)
  1. TYLENOL [Suspect]
     Indication: ARTHRITIS
     Dosage: 1 DOSE (S), 1 IN 1 TOTAL, ORAL
     Route: 048
     Dates: start: 20041112, end: 20041112
  2. NAPROSYN [Suspect]
     Indication: ARTHRITIS
     Dates: start: 20040901, end: 20041101
  3. SYNTHROID [Concomitant]
  4. HYDROCHLOROTHIAZIDE [Concomitant]
  5. VITAMN (VITAMINS NOS) [Concomitant]

REACTIONS (1)
  - STEVENS-JOHNSON SYNDROME [None]
